FAERS Safety Report 17229614 (Version 8)
Quarter: 2021Q1

REPORT INFORMATION
  Report Type: Report from Study
  Country: BR (occurrence: BR)
  Receive Date: 20200103
  Receipt Date: 20210304
  Transmission Date: 20210419
  Serious: Yes (Other)
  Sender: FDA-Public Use
  Company Number: BR-IPSEN BIOPHARMACEUTICALS, INC.-2019-16935

PATIENT
  Age: 80 Year
  Sex: Female
  Weight: 80 kg

DRUGS (7)
  1. STUGERON [Concomitant]
     Active Substance: CINNARIZINE
     Indication: HEARING AID THERAPY
     Dosage: MORE THAN 20 YEARS AGO (QD)
     Route: 048
  2. SOMATULINE AUTOGEL [Suspect]
     Active Substance: LANREOTIDE ACETATE
     Indication: ACROMEGALY
     Route: 058
     Dates: start: 2015
  3. ALPRAZOLAM. [Concomitant]
     Active Substance: ALPRAZOLAM
     Indication: ANXIETY
     Dosage: 3 MONTHS AGO (QD)
     Route: 048
  4. MALEATE OF ENALAPRIL [Concomitant]
     Indication: HYPERTENSION
     Dosage: MORE THAN 20 YEARS AGO (QD)
     Route: 048
  5. PREGABALIN. [Concomitant]
     Active Substance: PREGABALIN
     Indication: ANXIETY
     Dosage: 3 MONTHS AGO (QD)
     Route: 048
  6. LABIRIN [Concomitant]
     Active Substance: BETAHISTINE
     Indication: LABYRINTHITIS
     Dosage: 1 TABLET IF SHE NEEDS
     Route: 048
  7. MALEATE OF MIDAZOLAM [Concomitant]
     Indication: INSOMNIA
     Dosage: 1 TABLET IF SHE PRESENTS INSOMNIA
     Route: 048

REACTIONS (25)
  - Headache [Not Recovered/Not Resolved]
  - Hyperhidrosis [Not Recovered/Not Resolved]
  - Hypoaesthesia [Not Recovered/Not Resolved]
  - Paraesthesia [Not Recovered/Not Resolved]
  - Flatulence [Not Recovered/Not Resolved]
  - Labyrinthitis [Not Recovered/Not Resolved]
  - Dizziness [Not Recovered/Not Resolved]
  - Product dose omission issue [Unknown]
  - Pain [Unknown]
  - Loss of personal independence in daily activities [Not Recovered/Not Resolved]
  - Condition aggravated [Not Recovered/Not Resolved]
  - Feeling hot [Unknown]
  - Drug ineffective [Unknown]
  - Condition aggravated [Unknown]
  - Disturbance in attention [Not Recovered/Not Resolved]
  - Anxiety [Not Recovered/Not Resolved]
  - Arthralgia [Not Recovered/Not Resolved]
  - Gait disturbance [Not Recovered/Not Resolved]
  - Deafness [Not Recovered/Not Resolved]
  - Peripheral vascular disorder [Unknown]
  - Product dose omission issue [Unknown]
  - Amnesia [Not Recovered/Not Resolved]
  - Gastrooesophageal reflux disease [Not Recovered/Not Resolved]
  - Kyphosis [Unknown]
  - Illness [Not Recovered/Not Resolved]

NARRATIVE: CASE EVENT DATE: 2019
